FAERS Safety Report 4596667-8 (Version None)
Quarter: 2005Q1

REPORT INFORMATION
  Report Type: 
  Country: None (occurrence: None)
  Receive Date: 20050228
  Receipt Date: 20031223
  Transmission Date: 20050727
  Serious: Yes (Life-Threatening)
  Sender: FDA-Public Use
  Company Number: 6993

PATIENT
  Age: 50 Year
  Sex: Male

DRUGS (3)
  1. METHOTREXATE [Suspect]
     Indication: PSORIATIC ARTHROPATHY
     Dosage: 7.5 MG WEEKLY PO
     Route: 048
     Dates: start: 20020501
  2. SULFASALAZINE [Concomitant]
  3. CLOPENTHIXOL [Concomitant]

REACTIONS (6)
  - HAEMOPTYSIS [None]
  - HERPES SIMPLEX [None]
  - PANCYTOPENIA [None]
  - PHARYNGOLARYNGEAL PAIN [None]
  - SEPSIS [None]
  - STAPHYLOCOCCAL INFECTION [None]
